FAERS Safety Report 8322392-3 (Version None)
Quarter: 2012Q2

REPORT INFORMATION
  Report Type: 
  Country: None (occurrence: None)
  Receive Date: 20120430
  Receipt Date: 20120423
  Transmission Date: 20120825
  Serious: Yes (Hospitalization, Other)
  Sender: FDA-Public Use
  Company Number: US-BAYER-2011-098069

PATIENT
  Age: 39 Year
  Sex: Female
  Weight: 125.17 kg

DRUGS (6)
  1. VITAMIN D [Concomitant]
     Indication: HYPOVITAMINOSIS
     Dosage: UNK UNK, QD
  2. VITAMIN B6 [Concomitant]
     Indication: IMMUNE SYSTEM DISORDER
  3. IRON [Concomitant]
     Indication: BLOOD IRON DECREASED
     Dosage: 325MG
  4. YAZ [Suspect]
     Dosage: UNK
     Route: 048
     Dates: start: 20050101, end: 20100101
  5. VITAMIN B-12 [Concomitant]
  6. HYDROCODONE [Concomitant]
     Indication: PAIN
     Dosage: TID AS NEEDED
     Route: 048

REACTIONS (7)
  - PAIN [None]
  - PULMONARY EMBOLISM [None]
  - INJURY [None]
  - THROMBOSIS [None]
  - GALLBLADDER DISORDER [None]
  - CHOLELITHIASIS [None]
  - CHEST PAIN [None]
